FAERS Safety Report 8462378-1 (Version None)
Quarter: 2012Q2

REPORT INFORMATION
  Report Type: 
  Country: None (occurrence: None)
  Receive Date: 20120625
  Receipt Date: 20120620
  Transmission Date: 20120825
  Serious: Yes (Hospitalization, Other)
  Sender: FDA-Public Use
  Company Number: US-PFIZER INC-2012009479

PATIENT
  Sex: Male

DRUGS (2)
  1. CHANTIX [Suspect]
     Indication: SMOKING CESSATION THERAPY
     Dosage: STARTER PACK
     Dates: start: 20090101, end: 20090601
  2. LORTAB [Concomitant]
     Indication: PAIN
     Dosage: UNK
     Dates: start: 20080101

REACTIONS (6)
  - SUICIDE ATTEMPT [None]
  - FEELING GUILTY [None]
  - AGGRESSION [None]
  - DEPRESSION [None]
  - ANXIETY [None]
  - NIGHTMARE [None]
